FAERS Safety Report 22853554 (Version 2)
Quarter: 2023Q4

REPORT INFORMATION
  Report Type: Spontaneous
  Country: US (occurrence: US)
  Receive Date: 20230823
  Receipt Date: 20231128
  Transmission Date: 20240109
  Serious: No
  Sender: FDA-Public Use
  Company Number: US-SA-SAC20230821000469

PATIENT
  Age: 69 Year
  Sex: Male

DRUGS (1)
  1. KEVZARA [Suspect]
     Active Substance: SARILUMAB
     Indication: Polymyalgia rheumatica
     Dosage: 200 MG, QOW
     Route: 058
     Dates: start: 20230722

REACTIONS (3)
  - Arthralgia [Not Recovered/Not Resolved]
  - Back pain [Unknown]
  - Painful respiration [Unknown]

NARRATIVE: CASE EVENT DATE: 20230101
